FAERS Safety Report 5117203-3 (Version None)
Quarter: 2006Q3

REPORT INFORMATION
  Report Type: 
  Country: None (occurrence: None)
  Receive Date: 20060926
  Receipt Date: 20060915
  Transmission Date: 20061208
  Serious: Yes (Life-Threatening, Hospitalization, Other)
  Sender: FDA-Public Use
  Company Number: 2006112750

PATIENT
  Age: 66 Year
  Sex: Female
  Weight: 63.5036 kg

DRUGS (2)
  1. LIPITOR [Suspect]
     Indication: BLOOD CHOLESTEROL INCREASED
     Dosage: 80 MG (80 MG, 1 IN 1 D), ORAL
     Route: 048
     Dates: start: 20020101
  2. DRUG USED IN DIABETES (DRUG USED IN DIABETES) [Concomitant]

REACTIONS (6)
  - ANOREXIA [None]
  - BLOOD POTASSIUM DECREASED [None]
  - CONDITION AGGRAVATED [None]
  - DEMENTIA ALZHEIMER'S TYPE [None]
  - EATING DISORDER [None]
  - PARKINSON'S DISEASE [None]
